FAERS Safety Report 13505089 (Version 1)
Quarter: 2017Q2

REPORT INFORMATION
  Report Type: Spontaneous
  Country: US (occurrence: US)
  Receive Date: 20170502
  Receipt Date: 20170502
  Transmission Date: 20170830
  Serious: No
  Sender: FDA-Public Use
  Company Number: US-TARO-2017TAR00042

PATIENT
  Age: 88 Year
  Sex: Female
  Weight: 55.33 kg

DRUGS (12)
  1. ALOE VERA JUICE [Concomitant]
  2. PREMARIN CREAM [Concomitant]
  3. POTASSIUM [Concomitant]
     Active Substance: POTASSIUM
  4. FUROSEMIDE. [Concomitant]
     Active Substance: FUROSEMIDE
  5. VITAMIN C [Concomitant]
     Active Substance: ASCORBIC ACID
  6. AMIODARONE HCL TABLET 200 MG [Suspect]
     Active Substance: AMIODARONE HYDROCHLORIDE
     Indication: CARDIAC FAILURE
     Dosage: 200 MG, 2X/DAY
     Route: 048
     Dates: start: 20161103, end: 20161116
  7. AMIODARONE HCL TABLET 200 MG [Suspect]
     Active Substance: AMIODARONE HYDROCHLORIDE
     Indication: PALPITATIONS
  8. ONE-A-DAY NOS [Concomitant]
     Active Substance: MINERALS\VITAMINS
  9. AMIODARONE HCL TABLET 200 MG [Suspect]
     Active Substance: AMIODARONE HYDROCHLORIDE
     Indication: ATRIAL FIBRILLATION
     Dosage: 200 MG, 1X/DAY
     Route: 048
     Dates: start: 20161117, end: 20170113
  10. ELIQUIS [Concomitant]
     Active Substance: APIXABAN
  11. VITAMIN B [Concomitant]
     Active Substance: VITAMIN B
  12. CALCIUM [Concomitant]
     Active Substance: CALCIUM

REACTIONS (7)
  - Rash [Unknown]
  - Dry mouth [Recovering/Resolving]
  - Pruritus [Recovering/Resolving]
  - Blood creatinine increased [Not Recovered/Not Resolved]
  - Off label use [Recovered/Resolved]
  - Crying [Recovered/Resolved]
  - Mental impairment [Recovered/Resolved]

NARRATIVE: CASE EVENT DATE: 2016
